FAERS Safety Report 16994219 (Version 1)
Quarter: 2019Q4

REPORT INFORMATION
  Report Type: Spontaneous
  Country: FR (occurrence: FR)
  Receive Date: 20191105
  Receipt Date: 20191105
  Transmission Date: 20200122
  Serious: Yes (Hospitalization)
  Sender: FDA-Public Use
  Company Number: FR-BAXTER-2019BAX021896

PATIENT
  Age: 28 Year
  Sex: Female
  Weight: 55 kg

DRUGS (2)
  1. HOLOXAN 2000 MG, POUDRE POUR USAGE PARENT?RAL [Suspect]
     Active Substance: IFOSFAMIDE
     Indication: SYNOVIAL SARCOMA
     Route: 041
     Dates: start: 20190520
  2. DOXORUBICINE [Concomitant]
     Active Substance: DOXORUBICIN
     Indication: SYNOVIAL SARCOMA
     Route: 041
     Dates: start: 20190520

REACTIONS (6)
  - Headache [Recovering/Resolving]
  - Photophobia [Recovered/Resolved]
  - Vitreous floaters [Recovered/Resolved]
  - Vomiting [Recovered/Resolved]
  - Nausea [Recovered/Resolved]
  - Vertigo [Recovered/Resolved]

NARRATIVE: CASE EVENT DATE: 20190520
